FAERS Safety Report 9064121 (Version 1)
Quarter: 2013Q1

REPORT INFORMATION
  Report Type: Spontaneous
  Country: DE (occurrence: DE)
  Receive Date: 20130213
  Receipt Date: 20130213
  Transmission Date: 20140127
  Serious: Yes (Other)
  Sender: FDA-Public Use
  Company Number: DE-FRI-1000041221

PATIENT
  Sex: Male
  Weight: 70 kg

DRUGS (4)
  1. ROFLUMILAST [Suspect]
     Dosage: 500 MCG
     Dates: start: 20121211
  2. ROFLUMILAST [Suspect]
     Dosage: 500 MCG QOD
  3. BRONCHORETARD [Concomitant]
     Dosage: 400 MG
  4. DECORTIN H [Concomitant]
     Dosage: 5 MG

REACTIONS (3)
  - Appetite disorder [Recovered/Resolved]
  - Diarrhoea [Recovered/Resolved]
  - Incorrect dose administered [Unknown]
